FAERS Safety Report 7234858-8 (Version None)
Quarter: 2011Q1

REPORT INFORMATION
  Report Type: 
  Country: None (occurrence: None)
  Receive Date: 20110120
  Receipt Date: 20110118
  Transmission Date: 20110831
  Serious: No
  Sender: FDA-Public Use
  Company Number: US-PFIZER INC-2011012891

PATIENT
  Sex: Female
  Weight: 113 kg

DRUGS (4)
  1. MELOXICAM [Concomitant]
     Indication: INFLAMMATION
     Dosage: 15 MG, 1X/DAY
     Route: 048
  2. LOTREL [Concomitant]
     Indication: HYPERTENSION
     Dosage: 10/40 MG DAILY
     Route: 048
  3. GABAPENTIN [Suspect]
     Indication: NERVE INJURY
     Dosage: 200 MG, 2X/DAY
     Route: 048
     Dates: start: 20100101
  4. GABAPENTIN [Suspect]
     Indication: NEURALGIA

REACTIONS (1)
  - ALOPECIA [None]
